FAERS Safety Report 13192832 (Version 3)
Quarter: 2017Q3

REPORT INFORMATION
  Report Type: Spontaneous
  Country: US (occurrence: US)
  Receive Date: 20170207
  Receipt Date: 20170926
  Transmission Date: 20171127
  Serious: No
  Sender: FDA-Public Use
  Company Number: US-BAYER-2017-021033

PATIENT
  Sex: Male
  Weight: 72.56 kg

DRUGS (5)
  1. ALEVE [Suspect]
     Active Substance: NAPROXEN SODIUM
     Indication: PAIN
     Dosage: 1 DF, ONCE
     Route: 048
  2. BENADRYL [Concomitant]
     Active Substance: DIPHENHYDRAMINE HYDROCHLORIDE
     Dosage: 25 MG, UNK
     Route: 042
     Dates: start: 20170201
  3. SOLU-MEDROL [Concomitant]
     Active Substance: METHYLPREDNISOLONE SODIUM SUCCINATE
     Dosage: 125 MG, UNK
     Route: 042
     Dates: start: 20170201
  4. TYLENOL [Concomitant]
     Active Substance: ACETAMINOPHEN
     Dosage: 650 MG, UNK
     Route: 048
     Dates: start: 20170201
  5. PEPCID [Concomitant]
     Active Substance: FAMOTIDINE
     Dosage: 20 MG, UNK
     Route: 042
     Dates: start: 20170201

REACTIONS (16)
  - Stomatitis [Unknown]
  - Skin irritation [Unknown]
  - Hypersensitivity [Unknown]
  - Gingival swelling [Unknown]
  - Drug hypersensitivity [Unknown]
  - Gingival pain [Unknown]
  - Abdominal rigidity [None]
  - Lip swelling [Unknown]
  - Pain of skin [Unknown]
  - Lip pain [Unknown]
  - Rash pruritic [None]
  - Rash [None]
  - Urticaria [None]
  - Muscle swelling [Unknown]
  - Hypertension [Unknown]
  - Swelling face [None]
